FAERS Safety Report 4707549-2 (Version None)
Quarter: 2005Q3

REPORT INFORMATION
  Report Type: 
  Country: None (occurrence: None)
  Receive Date: 20050706
  Receipt Date: 20050623
  Transmission Date: 20060218
  Serious: Yes (Life-Threatening, Hospitalization, Other)
  Sender: FDA-Public Use
  Company Number: GB-JNJFOC-20050201565

PATIENT
  Sex: Female
  Weight: 93 kg

DRUGS (7)
  1. SPORANOX [Suspect]
     Indication: ANTIFUNGAL PROPHYLAXIS
     Route: 049
     Dates: start: 20050105, end: 20050120
  2. ATENOLOL [Concomitant]
  3. ASPIRIN [Concomitant]
  4. ACYCLOVIR [Concomitant]
     Indication: ANTIVIRAL PROPHYLAXIS
  5. ALLOPURINOL [Concomitant]
  6. AMILORIDE HCL AND HYDROCHLOROTHIAZIDE [Concomitant]
  7. AMILORIDE HCL AND HYDROCHLOROTHIAZIDE [Concomitant]
     Dosage: 5/4 TABLET

REACTIONS (1)
  - RENAL IMPAIRMENT [None]
